FAERS Safety Report 14855360 (Version 5)
Quarter: 2018Q3

REPORT INFORMATION
  Report Type: Spontaneous
  Country: PT (occurrence: PT)
  Receive Date: 20180507
  Receipt Date: 20180808
  Transmission Date: 20181010
  Serious: Yes (Other)
  Sender: FDA-Public Use
  Company Number: PT-VIIV HEALTHCARE LIMITED-PT2018075316

PATIENT
  Age: 43 Year
  Sex: Female

DRUGS (9)
  1. PREZISTA [Suspect]
     Active Substance: DARUNAVIR ETHANOLATE
     Indication: HIV INFECTION
     Dosage: UNK
     Route: 048
  2. PREZISTA [Suspect]
     Active Substance: DARUNAVIR ETHANOLATE
     Dosage: 800 MG, UNK
     Route: 048
  3. PREZISTA [Suspect]
     Active Substance: DARUNAVIR ETHANOLATE
     Route: 048
  4. TIVICAY [Suspect]
     Active Substance: DOLUTEGRAVIR SODIUM
     Indication: HIV INFECTION
     Dosage: UNK
     Route: 065
  5. NORVIR [Suspect]
     Active Substance: RITONAVIR
     Indication: HIV INFECTION
     Dosage: DOSAGE FORM: UNSPECIFIED
     Route: 065
  6. NORVIR [Suspect]
     Active Substance: RITONAVIR
     Dosage: 100 MG, UNK
     Route: 065
  7. TIVICAY [Suspect]
     Active Substance: DOLUTEGRAVIR SODIUM
     Dosage: 300 MG, QD
     Route: 065
     Dates: start: 20151227, end: 201702
  8. PREZISTA [Suspect]
     Active Substance: DARUNAVIR ETHANOLATE
     Indication: HIV INFECTION
     Dosage: 800 MG, UNK
     Route: 048
  9. EMTRICITABINE/TENOFOVIR DISOPROXIL FUMARATE [Suspect]
     Active Substance: EMTRICITABINE\TENOFOVIR DISOPROXIL FUMARATE
     Indication: HIV INFECTION
     Dosage: DOSAGE FORM: UNSPECIFIED
     Route: 065

REACTIONS (33)
  - Fibrocystic breast disease [Unknown]
  - Hepatitis C [Recovering/Resolving]
  - Weight decreased [Recovering/Resolving]
  - Arthralgia [Unknown]
  - Depression [Unknown]
  - Abdominal distension [Recovered/Resolved]
  - Visual impairment [Recovered/Resolved]
  - Thrombocytopenia [Recovering/Resolving]
  - Hypoaesthesia oral [Recovering/Resolving]
  - Hyperthyroidism [Unknown]
  - Respiratory tract infection [Recovering/Resolving]
  - Bronchitis chronic [Unknown]
  - Pain [Recovering/Resolving]
  - Joint swelling [Recovering/Resolving]
  - Cyst [Recovering/Resolving]
  - Lipoma [Recovering/Resolving]
  - Thyroid mass [Recovering/Resolving]
  - Menorrhagia [Not Recovered/Not Resolved]
  - Vaginal lesion [Unknown]
  - Pulmonary tuberculosis [Unknown]
  - Uterine leiomyoma [Unknown]
  - Alopecia [Recovering/Resolving]
  - Spleen disorder [Recovered/Resolved]
  - Dyspnoea [Recovering/Resolving]
  - Throat irritation [Recovering/Resolving]
  - Rheumatoid factor increased [Not Recovered/Not Resolved]
  - Urinary tract infection [Unknown]
  - Leiomyoma [Recovering/Resolving]
  - Constipation [Recovering/Resolving]
  - Hypokinesia [Not Recovered/Not Resolved]
  - Haemorrhage [Not Recovered/Not Resolved]
  - Hypothyroidism [Unknown]
  - Tooth disorder [Recovering/Resolving]

NARRATIVE: CASE EVENT DATE: 2013
